FAERS Safety Report 7052656-5 (Version None)
Quarter: 2010Q4

REPORT INFORMATION
  Report Type: 
  Country: None (occurrence: None)
  Receive Date: 20101014
  Receipt Date: 20101007
  Transmission Date: 20110411
  Serious: Yes (Other)
  Sender: FDA-Public Use
  Company Number: 2010SP054155

PATIENT
  Age: 72 Year
  Sex: Female

DRUGS (2)
  1. ZEGERID [Suspect]
     Indication: ABDOMINAL DISCOMFORT
     Dosage: PO
     Route: 048
  2. ZEGERID [Suspect]
     Indication: DYSPEPSIA
     Dosage: PO
     Route: 048

REACTIONS (1)
  - HAEMATOCHEZIA [None]
